FAERS Safety Report 4803233-5 (Version None)
Quarter: 2005Q4

REPORT INFORMATION
  Report Type: 
  Country: None (occurrence: None)
  Receive Date: 20051013
  Receipt Date: 20050928
  Transmission Date: 20060501
  Serious: Yes (Hospitalization)
  Sender: FDA-Public Use
  Company Number: USA050392286

PATIENT
  Age: 40 Year
  Sex: Female
  Weight: 62 kg

DRUGS (2)
  1. CYMBALTA [Suspect]
     Indication: DEPRESSION
     Dosage: 60 MG
     Dates: start: 20050110, end: 20050224
  2. LORCET-HD [Concomitant]

REACTIONS (3)
  - HEPATITIS C [None]
  - PETECHIAE [None]
  - THROMBOCYTOPENIA [None]
